FAERS Safety Report 25217015 (Version 1)
Quarter: 2025Q2

REPORT INFORMATION
  Report Type: Spontaneous
  Country: CA (occurrence: CA)
  Receive Date: 20250419
  Receipt Date: 20250419
  Transmission Date: 20250716
  Serious: Yes (Other)
  Sender: CELLTRION
  Company Number: CA-CELLTRION INC.-2025CA010819

PATIENT

DRUGS (4)
  1. STEQEYMA [Suspect]
     Active Substance: USTEKINUMAB-STBA
     Indication: Crohn^s disease
     Route: 042
  2. STEQEYMA [Suspect]
     Active Substance: USTEKINUMAB-STBA
     Indication: Crohn^s disease
  3. STEQEYMA [Suspect]
     Active Substance: USTEKINUMAB-STBA
     Route: 058
  4. STEQEYMA [Suspect]
     Active Substance: USTEKINUMAB-STBA

REACTIONS (3)
  - Lung neoplasm malignant [Unknown]
  - Intentional dose omission [Recovered/Resolved]
  - Intentional product use issue [Unknown]
